FAERS Safety Report 8343168-7 (Version None)
Quarter: 2012Q2

REPORT INFORMATION
  Report Type: 
  Country: None (occurrence: None)
  Receive Date: 20120508
  Receipt Date: 20120504
  Transmission Date: 20120825
  Serious: Yes (Other)
  Sender: FDA-Public Use
  Company Number: US-AMGEN-USASP2012027644

PATIENT
  Age: 78 Year
  Sex: Female
  Weight: 58.503 kg

DRUGS (7)
  1. TUMS                               /00193601/ [Concomitant]
  2. PROLIA [Suspect]
     Indication: OSTEOPOROSIS POSTMENOPAUSAL
     Dosage: 60 MG, Q6MO
     Route: 058
     Dates: start: 20111215
  3. VITAMIN D [Concomitant]
  4. PROPRANOLOL [Concomitant]
     Route: 048
  5. MULTIVITAMIN                       /00097801/ [Concomitant]
  6. ZANTAC [Concomitant]
     Route: 048
  7. PROLIA [Suspect]
     Indication: OSTEOPENIA
     Dosage: 60 MG, Q6MO
     Route: 058
     Dates: start: 20110701

REACTIONS (2)
  - TOOTH ABSCESS [None]
  - BONE LOSS [None]
